FAERS Safety Report 7758998-X (Version None)
Quarter: 2011Q3

REPORT INFORMATION
  Report Type: 
  Country: None (occurrence: None)
  Receive Date: 20110915
  Receipt Date: 20110817
  Transmission Date: 20111222
  Serious: Yes (Death)
  Sender: FDA-Public Use
  Company Number: NES-AE-11-002

PATIENT
  Age: 56 Year
  Sex: Female
  Weight: 77.1115 kg

DRUGS (5)
  1. ATENOLOL [Concomitant]
  2. OXYCODONE AND ACETAMINOPHEN [Suspect]
     Indication: PAIN
     Dosage: 10/320MG
  3. MORPHINE SULFATE [Suspect]
     Indication: PAIN
     Dosage: 15MG
  4. CYCLOPHOSPHAMIDE [Suspect]
  5. AMLODIPINE BESYLATE AND BENAZEPRIL HCL [Concomitant]

REACTIONS (9)
  - UNRESPONSIVE TO STIMULI [None]
  - LEFT VENTRICULAR HYPERTROPHY [None]
  - MULTIPLE DRUG OVERDOSE [None]
  - LEFT ATRIAL DILATATION [None]
  - MALAISE [None]
  - ACCIDENTAL DEATH [None]
  - TOXICITY TO VARIOUS AGENTS [None]
  - GASTROENTERITIS VIRAL [None]
  - DIASTOLIC DYSFUNCTION [None]
